FAERS Safety Report 6927103-1 (Version None)
Quarter: 2010Q3

REPORT INFORMATION
  Report Type: 
  Country: None (occurrence: None)
  Receive Date: 20100816
  Receipt Date: 20100813
  Transmission Date: 20110219
  Serious: No
  Sender: FDA-Public Use
  Company Number: US-ABBOTT-10P-163-0663586-00

PATIENT
  Sex: Female
  Weight: 93.07 kg

DRUGS (2)
  1. SIMCOR [Suspect]
     Indication: LOW DENSITY LIPOPROTEIN INCREASED
  2. NIASPAN [Suspect]
     Indication: LOW DENSITY LIPOPROTEIN INCREASED

REACTIONS (3)
  - DRUG DOSE OMISSION [None]
  - GENERALISED ERYTHEMA [None]
  - PARAESTHESIA [None]
